FAERS Safety Report 6522044-6 (Version None)
Quarter: 2009Q4

REPORT INFORMATION
  Report Type: 
  Country: None (occurrence: None)
  Receive Date: 20091224
  Receipt Date: 20091221
  Transmission Date: 20100525
  Serious: Yes (Death)
  Sender: FDA-Public Use
  Company Number: 2009AC000519

PATIENT
  Sex: Male

DRUGS (1)
  1. DIGOXIN [Suspect]
     Dosage: PO
     Route: 048

REACTIONS (21)
  - ANHEDONIA [None]
  - ANXIETY [None]
  - ARRHYTHMIA [None]
  - CARDIAC FAILURE CONGESTIVE [None]
  - DECREASED APPETITE [None]
  - DEFORMITY [None]
  - DIARRHOEA [None]
  - ECONOMIC PROBLEM [None]
  - ELECTROCARDIOGRAM ABNORMAL [None]
  - FATIGUE [None]
  - HEART RATE IRREGULAR [None]
  - HYPOTENSION [None]
  - INJURY [None]
  - MALAISE [None]
  - NAUSEA [None]
  - PAIN [None]
  - PARTNER STRESS [None]
  - SYNCOPE [None]
  - VISUAL IMPAIRMENT [None]
  - VOMITING [None]
  - WEIGHT DECREASED [None]
